FAERS Safety Report 6982644-6 (Version None)
Quarter: 2010Q3

REPORT INFORMATION
  Report Type: 
  Country: None (occurrence: None)
  Receive Date: 20100909
  Receipt Date: 20100826
  Transmission Date: 20110219
  Serious: Yes (Other)
  Sender: FDA-Public Use
  Company Number: 2010AP001760

PATIENT
  Age: 73 Year
  Sex: Female

DRUGS (4)
  1. GABAPENTIN [Suspect]
     Indication: POST HERPETIC NEURALGIA
     Dosage: 300 MG; BID;
  2. BROMOCRIPTINE [Concomitant]
  3. LISINOPRIL [Concomitant]
  4. LEVOTHYROXINE SODIUM [Concomitant]

REACTIONS (6)
  - EXCORIATION [None]
  - FORMICATION [None]
  - PAIN [None]
  - PAIN IN EXTREMITY [None]
  - RASH PRURITIC [None]
  - SOMATIC DELUSION [None]
